FAERS Safety Report 16528594 (Version 2)
Quarter: 2019Q3

REPORT INFORMATION
  Report Type: Report from Study
  Country: HU (occurrence: HU)
  Receive Date: 20190703
  Receipt Date: 20190709
  Transmission Date: 20191004
  Serious: Yes (Death, Other)
  Sender: FDA-Public Use
  Company Number: PHHY2019HU080175

PATIENT
  Age: 80 Year
  Sex: Female

DRUGS (6)
  1. PANTOPRAZOLE [Suspect]
     Active Substance: PANTOPRAZOLE
     Indication: GASTROOESOPHAGEAL REFLUX DISEASE
     Dosage: 40 MG, QD
     Route: 065
     Dates: start: 20190213
  2. TRAMADOL. [Suspect]
     Active Substance: TRAMADOL
     Indication: PAIN
     Dosage: 3 DF, QD
     Route: 065
     Dates: start: 20190213
  3. ULTIBRO BREEZHALER [Suspect]
     Active Substance: GLYCOPYRRONIUM\INDACATEROL
     Indication: CHRONIC OBSTRUCTIVE PULMONARY DISEASE
     Dosage: 1 DF, QD, (1 IN THE MORNING)
     Route: 065
     Dates: start: 20190213
  4. VITAMIN D [Suspect]
     Active Substance: VITAMIN D NOS
     Indication: OSTEOPOROSIS
     Dosage: 1000 IU, UNK
     Route: 065
     Dates: start: 20190213
  5. FRAXIPARINE [Concomitant]
     Active Substance: NADROPARIN CALCIUM
     Indication: PROPHYLAXIS
     Dosage: 1 DF, QD
     Route: 065
     Dates: start: 20190213
  6. NEBILET [Concomitant]
     Active Substance: NEBIVOLOL
     Indication: HYPERTENSION
     Dosage: 0.5 DF, QD
     Route: 065
     Dates: start: 20190213

REACTIONS (2)
  - Respiratory failure [Fatal]
  - Lung adenocarcinoma stage III [Unknown]

NARRATIVE: CASE EVENT DATE: 20190407
